FAERS Safety Report 16276059 (Version 1)
Quarter: 2019Q2

REPORT INFORMATION
  Report Type: Spontaneous
  Country: US (occurrence: US)
  Receive Date: 20190330
  Receipt Date: 20190330
  Transmission Date: 20190711
  Serious: Yes (Other)
  Sender: FDA-Public Use
  Company Number: None

PATIENT
  Age: 45 Year
  Sex: Female
  Weight: 53.07 kg

DRUGS (9)
  1. PROBIOTICS [Concomitant]
     Active Substance: PROBIOTICS NOS
  2. VITAMIN D NOS [Concomitant]
     Active Substance: VITAMIN D NOS
  3. DIGESTMORE ULTRA [Concomitant]
  4. ORILISSA [Suspect]
     Active Substance: ELAGOLIX SODIUM
     Indication: ENDOMETRIOSIS
     Dosage: ?          QUANTITY:1 DF DOSAGE FORM;?
     Route: 048
     Dates: start: 20190128, end: 20190220
  5. METFORMIN (PCOS) [Concomitant]
  6. FOLIC ACID. [Concomitant]
     Active Substance: FOLIC ACID
  7. OMEGA 3S [Concomitant]
  8. SYNTHROID [Concomitant]
     Active Substance: LEVOTHYROXINE SODIUM
  9. LEXAPRO [Concomitant]
     Active Substance: ESCITALOPRAM OXALATE

REACTIONS (4)
  - Product label confusion [None]
  - Depression [None]
  - Suicidal ideation [None]
  - Pruritus [None]

NARRATIVE: CASE EVENT DATE: 20190129
